FAERS Safety Report 23178307 (Version 2)
Quarter: 2023Q4

REPORT INFORMATION
  Report Type: Report from Study
  Country: US (occurrence: US)
  Receive Date: 20231113
  Receipt Date: 20231213
  Transmission Date: 20240110
  Serious: No
  Sender: FDA-Public Use
  Company Number: US-ALXN-A202313051

PATIENT
  Sex: Female

DRUGS (1)
  1. SOLIRIS [Suspect]
     Active Substance: ECULIZUMAB
     Indication: Myasthenia gravis
     Dosage: UNK
     Route: 065

REACTIONS (8)
  - Poor venous access [Unknown]
  - Infusion site swelling [Recovering/Resolving]
  - Myalgia [Recovered/Resolved]
  - Migraine [Unknown]
  - Infusion site pain [Recovering/Resolving]
  - Vomiting [Unknown]
  - Peripheral swelling [Recovering/Resolving]
  - Contusion [Unknown]

NARRATIVE: CASE EVENT DATE: 20231021
